FAERS Safety Report 21701721 (Version 1)
Quarter: 2022Q4

REPORT INFORMATION
  Report Type: Report from Study
  Country: FR (occurrence: FR)
  Receive Date: 20221208
  Receipt Date: 20221208
  Transmission Date: 20230113
  Serious: Yes (Other)
  Sender: FDA-Public Use
  Company Number: FR-TEVA-2022-FR-2833273

PATIENT

DRUGS (11)
  1. FLUDARABINE [Suspect]
     Active Substance: FLUDARABINE PHOSPHATE
     Indication: Bone marrow conditioning regimen
     Dosage: 30 MG/M2 DAILY; FROM DAY -13 TO DAY -10, PRIOR TO TRANSPLANTATION.
     Route: 065
  2. MYCOPHENOLATE MOFETIL [Suspect]
     Active Substance: MYCOPHENOLATE MOFETIL
     Indication: Prophylaxis against graft versus host disease
     Dosage: FROM DAY -1, PRIOR TO TRANSPLANTATION.
     Route: 065
  3. CYTARABINE [Suspect]
     Active Substance: CYTARABINE
     Indication: Bone marrow conditioning regimen
     Dosage: 2000 MG/M2 DAILY; FROM DAY -13 TO DAY -10, PRIOR TO TRANSPLANTATION.
     Route: 065
  4. AMSACRINE [Suspect]
     Active Substance: AMSACRINE
     Indication: Bone marrow conditioning regimen
     Dosage: 100 MG/M2 DAILY; FROM DAY -13 TO DAY -10, PRIOR TO TRANSPLANTATION.
     Route: 065
  5. BUSULFAN [Suspect]
     Active Substance: BUSULFAN
     Indication: Bone marrow conditioning regimen
     Dosage: 3.2 MG/KG DAILY; FROM DAY -4 TO DAY -3, PRIOR TO TRANSPLANTATION
     Route: 042
  6. MELPHALAN [Suspect]
     Active Substance: MELPHALAN
     Indication: Bone marrow conditioning regimen
     Dosage: ON DAY -6, PRIOR TO TRANSPLANTATION , 140 MG/M2
     Route: 065
  7. THYMOGLOBULIN [Suspect]
     Active Substance: LAPINE T-LYMPHOCYTE IMMUNE GLOBULIN
     Indication: Bone marrow conditioning regimen
     Dosage: 2.5 MG/KG DAILY; FROM DAY -3 TO DAY -2, PRIOR TO TRANSPLANTATION.
     Route: 065
  8. CYCLOSPORINE [Suspect]
     Active Substance: CYCLOSPORINE
     Indication: Prophylaxis against graft versus host disease
     Dosage: FROM DAY -3, PRIOR TO TRANSPLANTATION.
     Route: 065
  9. ACYCLOVIR [Concomitant]
     Active Substance: ACYCLOVIR
     Indication: Infection prophylaxis
     Route: 065
  10. FLUCONAZOLE [Concomitant]
     Active Substance: FLUCONAZOLE
     Indication: Infection prophylaxis
     Route: 065
  11. SULFAMETHOXAZOLE\TRIMETHOPRIM [Concomitant]
     Active Substance: SULFAMETHOXAZOLE\TRIMETHOPRIM
     Indication: Infection prophylaxis
     Route: 065

REACTIONS (1)
  - Haematemesis [Recovered/Resolved]
